FAERS Safety Report 12580940 (Version 1)
Quarter: 2016Q3

REPORT INFORMATION
  Report Type: Spontaneous
  Country: US (occurrence: US)
  Receive Date: 20160721
  Receipt Date: 20160721
  Transmission Date: 20161109
  Serious: Yes (Other)
  Sender: FDA-Public Use
  Company Number: US-BAYER-2016-140671

PATIENT
  Age: 39 Year
  Sex: Female
  Weight: 61.22 kg

DRUGS (1)
  1. COPPERTONE WATER BABIES SPF 50 [Suspect]
     Active Substance: AVOBENZONE\HOMOSALATE\OCTISALATE\OCTOCRYLENE\OXYBENZONE
     Indication: PROPHYLAXIS AGAINST SOLAR RADIATION
     Dosage: UNK, PRN
     Route: 061
     Dates: end: 20160714

REACTIONS (3)
  - Chemical eye injury [None]
  - Photophobia [None]
  - Ocular hyperaemia [None]

NARRATIVE: CASE EVENT DATE: 20160714
